FAERS Safety Report 15011270 (Version 3)
Quarter: 2018Q3

REPORT INFORMATION
  Report Type: Spontaneous
  Country: US (occurrence: US)
  Receive Date: 20180614
  Receipt Date: 20180813
  Transmission Date: 20181010
  Serious: Yes (Other)
  Sender: FDA-Public Use
  Company Number: US-GLENMARK PHARMACEUTICALS-2018GMK035933

PATIENT

DRUGS (3)
  1. URSODIOL TABLETS USP, 500 MG [Suspect]
     Active Substance: URSODIOL
     Indication: PRIMARY BILIARY CHOLANGITIS
  2. URSODIOL TABLETS USP, 500 MG [Suspect]
     Active Substance: URSODIOL
     Indication: HEPATITIS
     Dosage: 500 MG, BID (IN THE MORNING WITH BREAKFAST AND ONCE AT NIGHT DURING DINNER)
     Route: 048
     Dates: start: 201801, end: 20180604
  3. URSODIOL TABLETS USP, 500 MG [Suspect]
     Active Substance: URSODIOL
     Indication: AUTOIMMUNE HEPATITIS
     Dosage: UNK
     Route: 065

REACTIONS (6)
  - Herpes zoster [Recovered/Resolved]
  - Product quality issue [Unknown]
  - Polyarthritis [Recovered/Resolved]
  - Erythema [Recovered/Resolved]
  - Contusion [Recovered/Resolved]
  - Rheumatoid arthritis [Recovered/Resolved]
